FAERS Safety Report 6085932-3 (Version None)
Quarter: 2009Q1

REPORT INFORMATION
  Report Type: 
  Country: None (occurrence: None)
  Receive Date: 20090217
  Receipt Date: 20080312
  Transmission Date: 20090719
  Serious: Yes (Death)
  Sender: FDA-Public Use
  Company Number: MC200800140

PATIENT

DRUGS (1)
  1. ANGIOMAX [Suspect]
     Indication: HEART VALVE OPERATION
     Dates: start: 20080101

REACTIONS (1)
  - HAEMORRHAGE [None]
